FAERS Safety Report 5775860-2 (Version None)
Quarter: 2008Q2

REPORT INFORMATION
  Report Type: 
  Country: None (occurrence: None)
  Receive Date: 20080617
  Receipt Date: 20080605
  Transmission Date: 20081010
  Serious: Yes (Other)
  Sender: FDA-Public Use
  Company Number: US-PFIZER INC-2008047839

PATIENT
  Sex: Male
  Weight: 68.181 kg

DRUGS (5)
  1. ZYVOX [Suspect]
     Indication: CARDIAC VALVE DISEASE
     Route: 042
     Dates: start: 20080501, end: 20080523
  2. ZYVOX [Suspect]
     Indication: CARDIAC VALVE DISEASE
     Route: 048
  3. SYNTHROID [Concomitant]
  4. ALL OTHER THERAPEUTIC PRODUCTS [Concomitant]
  5. PLAVIX [Concomitant]

REACTIONS (4)
  - DIZZINESS [None]
  - DYSGEUSIA [None]
  - NAUSEA [None]
  - WEIGHT DECREASED [None]
